FAERS Safety Report 6486372-5 (Version None)
Quarter: 2009Q4

REPORT INFORMATION
  Report Type: 
  Country: None (occurrence: None)
  Receive Date: 20091210
  Receipt Date: 20091202
  Transmission Date: 20100525
  Serious: Yes (Hospitalization)
  Sender: FDA-Public Use
  Company Number: US-BIOGENIDEC-2009BI008391

PATIENT
  Age: 45 Year
  Sex: Female

DRUGS (2)
  1. TYSABRI [Suspect]
     Indication: MULTIPLE SCLEROSIS
     Route: 042
     Dates: start: 20081020, end: 20090225
  2. TYSABRI [Suspect]
     Route: 042
     Dates: start: 20090514, end: 20090601

REACTIONS (7)
  - BALANCE DISORDER [None]
  - CYSTITIS [None]
  - FALL [None]
  - FATIGUE [None]
  - NASOPHARYNGITIS [None]
  - SENSATION OF HEAVINESS [None]
  - URINARY TRACT INFECTION [None]
